FAERS Safety Report 22655977 (Version 1)
Quarter: 2023Q2

REPORT INFORMATION
  Report Type: Report from Study
  Country: US (occurrence: US)
  Receive Date: 20230629
  Receipt Date: 20230629
  Transmission Date: 20230721
  Serious: Yes (Hospitalization)
  Sender: FDA-Public Use
  Company Number: US-TAKEDA-2023TUS005119

PATIENT
  Sex: Male

DRUGS (3)
  1. MARIBAVIR [Suspect]
     Active Substance: MARIBAVIR
     Indication: Cytomegalovirus infection
     Dosage: 2 DOSAGE FORM, BID
     Route: 048
     Dates: start: 20230119
  2. MARIBAVIR [Suspect]
     Active Substance: MARIBAVIR
     Indication: Post procedural complication
     Dosage: 400 MILLIGRAM, BID
     Route: 048
     Dates: end: 20230516
  3. PREVYMIS [Concomitant]
     Active Substance: LETERMOVIR
     Dosage: UNK

REACTIONS (3)
  - Hospitalisation [Unknown]
  - Viral load increased [Unknown]
  - Drug resistance [Unknown]
